FAERS Safety Report 5140542-7 (Version None)
Quarter: 2006Q4

REPORT INFORMATION
  Report Type: 
  Country: None (occurrence: None)
  Receive Date: 20061025
  Receipt Date: 20061003
  Transmission Date: 20070319
  Serious: Yes (Other)
  Sender: FDA-Public Use
  Company Number: US-2006-029491

PATIENT
  Sex: Female
  Weight: 90.7 kg

DRUGS (10)
  1. CLIMARA [Suspect]
     Indication: MENOPAUSAL SYMPTOMS
     Dosage: 0.1 MG/D, CONT, TRANSDERMAL
     Route: 062
     Dates: start: 20020101
  2. PREDNISONE TAB [Concomitant]
  3. ISONIAZID [Concomitant]
  4. SULFAMETHOXAZOLE + TRIMETHOPRIM [Concomitant]
  5. PROTONIX  WYETH-AYERST  (PANTOPRAZOLE SODIUM) [Concomitant]
  6. VITAMIN B6 [Concomitant]
  7. CATAPRES [Concomitant]
  8. VALCYTE [Concomitant]
  9. CELLCEPT [Concomitant]
  10. PROGRAF [Concomitant]

REACTIONS (5)
  - DRUG EFFECT DECREASED [None]
  - HOT FLUSH [None]
  - PALPITATIONS [None]
  - PHARMACEUTICAL PRODUCT COMPLAINT [None]
  - RENAL TRANSPLANT [None]
